FAERS Safety Report 9011334 (Version 1)
Quarter: 2013Q1

REPORT INFORMATION
  Report Type: Report from Study
  Country: CA (occurrence: CA)
  Receive Date: 20130108
  Receipt Date: 20130108
  Transmission Date: 20140127
  Serious: Yes (Other)
  Sender: FDA-Public Use
  Company Number: CA-JNJFOC-20130101213

PATIENT
  Sex: Female
  Weight: 77.11 kg

DRUGS (4)
  1. REMICADE [Suspect]
     Indication: CROHN^S DISEASE
     Route: 042
     Dates: start: 201205
  2. REMICADE [Suspect]
     Indication: CROHN^S DISEASE
     Route: 042
     Dates: end: 201205
  3. REMICADE [Suspect]
     Indication: CROHN^S DISEASE
     Route: 042
  4. REMICADE [Suspect]
     Indication: CROHN^S DISEASE
     Dosage: RESTARTED DRUG
     Route: 042
     Dates: start: 2010

REACTIONS (7)
  - Anaphylactoid syndrome of pregnancy [Unknown]
  - Arthralgia [Unknown]
  - Drug specific antibody present [Unknown]
  - Crohn^s disease [Unknown]
  - Exposure during pregnancy [Recovered/Resolved]
  - Dizziness [Unknown]
  - Malaise [Unknown]
